FAERS Safety Report 4750101-3 (Version None)
Quarter: 2005Q3

REPORT INFORMATION
  Report Type: 
  Country: None (occurrence: None)
  Receive Date: 20050822
  Receipt Date: 20050811
  Transmission Date: 20060218
  Serious: Yes (Other)
  Sender: FDA-Public Use
  Company Number: L05-YUG-02513-01

PATIENT
  Age: 53 Year
  Sex: Female

DRUGS (3)
  1. DILTIAZEM [Suspect]
     Indication: CORONARY ARTERY DISEASE
  2. LINCOMYCIN HCL [Concomitant]
  3. PENTAERYTHRITOL TETRANITRATE [Concomitant]

REACTIONS (19)
  - ADHESIOLYSIS [None]
  - ANAEMIA [None]
  - DRUG HYPERSENSITIVITY [None]
  - HYPERTHERMIA [None]
  - INTESTINAL PERFORATION [None]
  - LOSS OF CONSCIOUSNESS [None]
  - NEOPLASM MALIGNANT [None]
  - PERITONITIS [None]
  - PHARYNGITIS [None]
  - PLATELET COUNT INCREASED [None]
  - POST PROCEDURAL HAEMORRHAGE [None]
  - POSTOPERATIVE INFECTION [None]
  - PURPURA [None]
  - RASH GENERALISED [None]
  - RESUSCITATION [None]
  - RETROPERITONEAL ABSCESS [None]
  - SEPSIS [None]
  - SINUSITIS [None]
  - VASCULAR PURPURA [None]
